FAERS Safety Report 8355311-4 (Version None)
Quarter: 2012Q2

REPORT INFORMATION
  Report Type: 
  Country: None (occurrence: None)
  Receive Date: 20120511
  Receipt Date: 20120507
  Transmission Date: 20120825
  Serious: Yes (Life-Threatening, Hospitalization)
  Sender: FDA-Public Use
  Company Number: FR-CELGENEUS-056-21880-12051005

PATIENT
  Sex: Male

DRUGS (4)
  1. METFORMIN HCL [Concomitant]
     Route: 048
     Dates: start: 20080101
  2. CLONAZEPAM [Concomitant]
     Route: 048
     Dates: start: 20110607
  3. REVLIMID [Suspect]
     Indication: MULTIPLE MYELOMA
     Route: 048
     Dates: start: 20110325
  4. APROVEL [Concomitant]
     Route: 048
     Dates: start: 20080101

REACTIONS (1)
  - SEPSIS [None]
